FAERS Safety Report 10219467 (Version 1)
Quarter: 2014Q2

REPORT INFORMATION
  Report Type: Spontaneous
  Country: US (occurrence: None)
  Receive Date: 20140604
  Receipt Date: 20140604
  Transmission Date: 20141212
  Serious: Yes (Disabling, Other)
  Sender: FDA-Public Use
  Company Number: None

PATIENT
  Age: 68 Year
  Sex: Male
  Weight: 73.94 kg

DRUGS (1)
  1. TRIBENZOR [Suspect]
     Indication: HYPERTENSION
     Dosage: 1 PILL, ONCE DAILY, TAKEN BY MOUTH
     Route: 048
     Dates: start: 20140503, end: 20140603

REACTIONS (10)
  - Rash [None]
  - Skin exfoliation [None]
  - Diarrhoea [None]
  - Abdominal pain upper [None]
  - Muscle spasms [None]
  - Infection [None]
  - Nasopharyngitis [None]
  - Pain in extremity [None]
  - Pain in extremity [None]
  - Back pain [None]
